FAERS Safety Report 7586461-8 (Version None)
Quarter: 2011Q3

REPORT INFORMATION
  Report Type: 
  Country: None (occurrence: None)
  Receive Date: 20110701
  Receipt Date: 20110623
  Transmission Date: 20111222
  Serious: Yes (Hospitalization, Disabling, Other)
  Sender: FDA-Public Use
  Company Number: JP-B.I. PHARMACEUTICALS,INC./RIDGEFIELD-2011-BP-15197NB

PATIENT
  Sex: Female
  Weight: 67.2 kg

DRUGS (10)
  1. PRADAXA [Suspect]
     Indication: ATRIAL FIBRILLATION
     Dosage: 220 MG
     Route: 048
     Dates: start: 20110528
  2. ADALAT CC [Concomitant]
     Dosage: 40 MG
     Route: 048
     Dates: end: 20110613
  3. CRESTOR [Concomitant]
     Dosage: 2.5 MG
     Route: 048
     Dates: end: 20110612
  4. BONALON [Concomitant]
     Route: 048
  5. LENDORMIN [Concomitant]
     Dosage: 0.25 MG
     Route: 048
     Dates: end: 20110612
  6. MUCOSAL-L [Concomitant]
     Dosage: 45 MG
     Route: 048
     Dates: end: 20110612
  7. METHYCOBAL [Concomitant]
     Dosage: 1500 MCG
     Route: 048
     Dates: end: 20110613
  8. VERAPAMIL HCL [Concomitant]
     Dosage: 80 MG
     Route: 048
     Dates: end: 20110613
  9. TENORMIN [Concomitant]
     Dosage: 25 MG
     Route: 048
     Dates: end: 20110613
  10. FERRUM [Concomitant]
     Dosage: 100 MG
     Route: 048
     Dates: end: 20110613

REACTIONS (2)
  - ARTERIAL THROMBOSIS LIMB [None]
  - CEREBRAL INFARCTION [None]
